FAERS Safety Report 5073317-8 (Version None)
Quarter: 2006Q3

REPORT INFORMATION
  Report Type: 
  Country: None (occurrence: None)
  Receive Date: 20060706
  Receipt Date: 20060325
  Transmission Date: 20061208
  Serious: No
  Sender: FDA-Public Use
  Company Number: 200611858BWH

PATIENT
  Age: 55 Year
  Sex: Male

DRUGS (3)
  1. LEVITRA [Suspect]
     Dosage: SEE IMAGE
     Route: 048
  2. ASPIRIN [Suspect]
     Dosage: 81 MG, TOTAL DAILY, ORAL
     Route: 048
     Dates: start: 20030101
  3. VIAGRA [Concomitant]

REACTIONS (2)
  - ERECTILE DYSFUNCTION [None]
  - HAEMATOSPERMIA [None]
